FAERS Safety Report 8764553 (Version 1)
Quarter: 2012Q4

REPORT INFORMATION
  Report Type: 
  Country: US (occurrence: US)
  Receive Date: 20120831
  Receipt Date: 20120831
  Transmission Date: 20130627
  Serious: No
  Sender: FDA-Public Use
  Company Number: US-ASTRAZENECA-2011SE73456

PATIENT
  Age: 51 Year
  Sex: Female
  Weight: 94.3 kg

DRUGS (20)
  1. SYMBICORT PMDI [Suspect]
     Indication: ASTHMA
     Dosage: 80/4.5 MCG BID
     Route: 055
     Dates: start: 200806
  2. OMEPRAZOLE [Suspect]
     Indication: DYSPEPSIA
     Route: 048
  3. SEROQUEL [Suspect]
     Indication: ANXIETY
     Route: 048
  4. SEROQUEL [Suspect]
     Indication: INSOMNIA
     Route: 048
  5. SEROQUEL [Suspect]
     Indication: ANXIETY
     Route: 048
  6. SEROQUEL [Suspect]
     Indication: INSOMNIA
     Route: 048
  7. SEROQUEL [Suspect]
     Indication: ANXIETY
     Route: 048
     Dates: start: 201108
  8. SEROQUEL [Suspect]
     Indication: INSOMNIA
     Route: 048
     Dates: start: 201108
  9. LYRICA [Concomitant]
     Indication: FIBROMYALGIA
  10. LYRICA [Concomitant]
     Indication: ARTHRITIS
  11. LISINOPRIL [Concomitant]
     Indication: BLOOD PRESSURE ABNORMAL
  12. TRAMADOL HCL [Concomitant]
     Indication: BACK PAIN
  13. LEVOTHYROXINE [Concomitant]
     Indication: THYROID DISORDER
  14. MELOXICAM [Concomitant]
     Indication: FIBROMYALGIA
  15. MELOXICAM [Concomitant]
     Indication: ARTHRITIS
  16. EFFEXOR [Concomitant]
     Indication: DEPRESSION
  17. HYOSCYAMINE [Concomitant]
     Indication: IRRITABLE BOWEL SYNDROME
  18. HYOSCYAMINE [Concomitant]
     Indication: DIARRHOEA
  19. HYOSCYAMINE [Concomitant]
     Indication: MUSCLE SPASMS
  20. STEROID [Concomitant]

REACTIONS (6)
  - Headache [Unknown]
  - Migraine [Unknown]
  - Vomiting [Unknown]
  - Malaise [Unknown]
  - Drug withdrawal syndrome [Unknown]
  - Off label use [Unknown]
